FAERS Safety Report 21303425 (Version 2)
Quarter: 2023Q1

REPORT INFORMATION
  Report Type: Spontaneous
  Country: GB (occurrence: GB)
  Receive Date: 20220907
  Receipt Date: 20230209
  Transmission Date: 20230417
  Serious: Yes (Other)
  Sender: FDA-Public Use
  Company Number: GB-MHRA-MED-202209021002093920-HNJKM

PATIENT
  Age: 18 Year
  Sex: Male
  Weight: 58 kg

DRUGS (10)
  1. TRAZODONE [Suspect]
     Active Substance: TRAZODONE HYDROCHLORIDE
     Indication: Major depression
     Dosage: 150 MILLIGRAM, HS (150MG AT NIGHT)
     Route: 065
     Dates: start: 20200826
  2. CLOBETASONE [Concomitant]
     Active Substance: CLOBETASONE
     Indication: Eczema
     Dosage: UNK
     Route: 065
     Dates: start: 20200924, end: 20201001
  3. CHLOROCRESOL [Concomitant]
     Active Substance: CHLOROCRESOL
     Indication: Eczema
     Dosage: UNK
     Route: 065
     Dates: start: 20200522
  4. FLUCLOXACILLIN [Concomitant]
     Active Substance: FLUCLOXACILLIN
     Indication: Skin infection
     Dosage: UNK
     Route: 065
     Dates: start: 20200929
  5. FLUTICASONE [Concomitant]
     Active Substance: FLUTICASONE
     Indication: Asthma
     Dosage: UNK
     Route: 065
     Dates: start: 20190706
  6. LORAZEPAM [Concomitant]
     Active Substance: LORAZEPAM
     Indication: Agitation
     Dosage: UNK
     Route: 065
     Dates: start: 20190703
  7. PROMETHAZINE [Concomitant]
     Active Substance: PROMETHAZINE HYDROCHLORIDE
     Indication: Agitation
     Dosage: UNK
     Route: 065
     Dates: start: 20190703
  8. ALBUTEROL [Concomitant]
     Active Substance: ALBUTEROL
     Indication: Asthma
     Dosage: UNK
     Route: 065
     Dates: start: 20190703
  9. Uvistat [Concomitant]
     Indication: Photosensitivity reaction
     Dosage: UNK
     Route: 065
     Dates: start: 20210929
  10. POVIDONE-IODINE [Concomitant]
     Active Substance: POVIDONE-IODINE
     Dosage: UNK
     Route: 065
     Dates: start: 20200930

REACTIONS (1)
  - Hypokalaemia [Recovered/Resolved]

NARRATIVE: CASE EVENT DATE: 20201002
